FAERS Safety Report 7916925-6 (Version None)
Quarter: 2011Q4

REPORT INFORMATION
  Report Type: 
  Country: None (occurrence: None)
  Receive Date: 20111114
  Receipt Date: 20111101
  Transmission Date: 20120403
  Serious: Yes (Other)
  Sender: FDA-Public Use
  Company Number: CIP-2011-00904

PATIENT
  Age: 60 Year
  Sex: Female

DRUGS (4)
  1. PACLITAXEL [Suspect]
     Indication: LUNG ADENOCARCINOMA STAGE III
  2. PACLITAXEL [Suspect]
     Indication: METASTASES TO LYMPH NODES
  3. CARBOPLATIN [Suspect]
     Indication: LUNG ADENOCARCINOMA STAGE III
  4. CARBOPLATIN [Suspect]
     Indication: METASTASES TO LYMPH NODES

REACTIONS (2)
  - HYPONATRAEMIA [None]
  - INAPPROPRIATE ANTIDIURETIC HORMONE SECRETION [None]
